FAERS Safety Report 8225425-8 (Version None)
Quarter: 2012Q1

REPORT INFORMATION
  Report Type: 
  Country: None (occurrence: None)
  Receive Date: 20120321
  Receipt Date: 20120314
  Transmission Date: 20120608
  Serious: Yes (Hospitalization)
  Sender: FDA-Public Use
  Company Number: US-BRISTOL-MYERS SQUIBB COMPANY-16453219

PATIENT
  Sex: Male

DRUGS (2)
  1. AVALIDE [Suspect]
     Dosage: 150MG AVAPRO AND 25MG HYDROCHLOROTHIAZIDE
  2. AVAPRO [Suspect]

REACTIONS (4)
  - APPENDICITIS [None]
  - CORONARY ARTERY OCCLUSION [None]
  - MEDICATION ERROR [None]
  - BLOOD PRESSURE FLUCTUATION [None]
